FAERS Safety Report 22123876 (Version 1)
Quarter: 2023Q1

REPORT INFORMATION
  Report Type: Spontaneous
  Country: US (occurrence: None)
  Receive Date: 20230321
  Receipt Date: 20230321
  Transmission Date: 20230418
  Serious: No
  Sender: FDA-Public Use
  Company Number: None

PATIENT
  Age: 60 Year
  Sex: Female
  Weight: 72 kg

DRUGS (7)
  1. PAXLOVID [Suspect]
     Active Substance: NIRMATRELVIR\RITONAVIR
     Dates: start: 20230225, end: 20230302
  2. metoprolol 150 [Concomitant]
  3. atorvastatin 80 [Concomitant]
  4. ASPIRIN [Concomitant]
     Active Substance: ASPIRIN
  5. spironolactone 12.5 [Concomitant]
  6. citalopram 40 [Concomitant]
  7. Vit D 1000 a day [Concomitant]

REACTIONS (5)
  - Nausea [None]
  - Gastrooesophageal reflux disease [None]
  - Diarrhoea [None]
  - Dysgeusia [None]
  - COVID-19 [None]

NARRATIVE: CASE EVENT DATE: 20230226
